FAERS Safety Report 4277045-8 (Version None)
Quarter: 2004Q1

REPORT INFORMATION
  Report Type: 
  Country: None (occurrence: None)
  Receive Date: 20040120
  Receipt Date: 20040107
  Transmission Date: 20041129
  Serious: Yes (Disabling)
  Sender: FDA-Public Use
  Company Number: 04H-144-0246962-00

PATIENT
  Age: 68 Year
  Sex: Male

DRUGS (4)
  1. BUPIVACAINE HCL INJECTION 0.5%, 10ML + 30ML FLIPTOP VIALS (BUPIVACAINE [Suspect]
     Indication: SPINAL ANAESTHESIA
     Dosage: 10 MG, ONCE, SPINAL
     Route: 024
  2. DIAZEPAM [Concomitant]
  3. ATROPINE [Concomitant]
  4. FENTANYL [Concomitant]

REACTIONS (5)
  - CAUDA EQUINA SYNDROME [None]
  - OEDEMA PERIPHERAL [None]
  - PAIN IN EXTREMITY [None]
  - PARAESTHESIA [None]
  - POST PROCEDURAL COMPLICATION [None]
